FAERS Safety Report 8524229-6 (Version None)
Quarter: 2012Q3

REPORT INFORMATION
  Report Type: 
  Country: None (occurrence: None)
  Receive Date: 20120720
  Receipt Date: 20120716
  Transmission Date: 20120928
  Serious: Yes (Death, Other)
  Sender: FDA-Public Use
  Company Number: TR-ROXANE LABORATORIES, INC.-2012-RO-01556RO

PATIENT
  Sex: Male

DRUGS (4)
  1. PROPRANOLOL [Suspect]
     Indication: HAEMANGIOMA
     Route: 048
  2. PREDNISOLONE [Suspect]
     Indication: HAEMANGIOMA
  3. PREDNISONE [Suspect]
     Indication: HAEMANGIOMA
  4. VINCRISTINE [Suspect]
     Indication: HAEMANGIOMA

REACTIONS (3)
  - DRUG INEFFECTIVE FOR UNAPPROVED INDICATION [None]
  - DISSEMINATED INTRAVASCULAR COAGULATION [None]
  - MULTI-ORGAN FAILURE [None]
